FAERS Safety Report 6711526-X (Version None)
Quarter: 2010Q2

REPORT INFORMATION
  Report Type: 
  Country: None (occurrence: None)
  Receive Date: 20100505
  Receipt Date: 20100421
  Transmission Date: 20101027
  Serious: Yes (Other)
  Sender: FDA-Public Use
  Company Number: PHHY2010DE16601

PATIENT
  Sex: Male

DRUGS (3)
  1. LEPONEX [Suspect]
     Indication: SCHIZOPHRENIA
     Dosage: 600 MG/DAY
     Route: 048
  2. LEPONEX [Suspect]
     Dosage: 400 MG/DAY
     Route: 048
     Dates: end: 20100312
  3. VALPROIC ACID [Concomitant]

REACTIONS (9)
  - ANTIPSYCHOTIC DRUG LEVEL INCREASED [None]
  - C-REACTIVE PROTEIN INCREASED [None]
  - ELECTROCARDIOGRAM QT PROLONGED [None]
  - LEUKOCYTOSIS [None]
  - NAUSEA [None]
  - PNEUMONIA [None]
  - TACHYCARDIA [None]
  - TUBERCULOSIS [None]
  - VOMITING [None]
